FAERS Safety Report 24362910 (Version 2)
Quarter: 2024Q4

REPORT INFORMATION
  Report Type: Spontaneous
  Country: DE (occurrence: DE)
  Receive Date: 20240925
  Receipt Date: 20241126
  Transmission Date: 20250115
  Serious: Yes (Death, Other)
  Sender: TAKEDA
  Company Number: DE-TAKEDA-2024TUS094675

PATIENT
  Sex: Male

DRUGS (1)
  1. FRUQUINTINIB [Suspect]
     Active Substance: FRUQUINTINIB
     Indication: Colon cancer metastatic
     Dosage: UNK

REACTIONS (5)
  - Colon cancer metastatic [Fatal]
  - General physical health deterioration [Unknown]
  - Back pain [Unknown]
  - Weight decreased [Unknown]
  - Fatigue [Unknown]
